FAERS Safety Report 13549573 (Version 1)
Quarter: 2017Q2

REPORT INFORMATION
  Report Type: Spontaneous
  Country: CN (occurrence: CN)
  Receive Date: 20170516
  Receipt Date: 20170516
  Transmission Date: 20170830
  Serious: Yes (Hospitalization)
  Sender: FDA-Public Use
  Company Number: PHHY2017CN068783

PATIENT
  Age: 31 Year
  Sex: Female
  Weight: 59.4 kg

DRUGS (4)
  1. SANDIMMUN [Suspect]
     Active Substance: CYCLOSPORINE
     Dosage: 140 MG, QD
     Route: 041
     Dates: start: 20170210, end: 20170213
  2. SANDIMMUN [Suspect]
     Active Substance: CYCLOSPORINE
     Dosage: 60 MG, QD
     Route: 041
     Dates: start: 20170215, end: 20170217
  3. SANDIMMUN [Suspect]
     Active Substance: CYCLOSPORINE
     Indication: PRODUCT USED FOR UNKNOWN INDICATION
     Dosage: 152 MG, QD
     Route: 041
     Dates: start: 20170206, end: 20170210
  4. SANDIMMUN [Suspect]
     Active Substance: CYCLOSPORINE
     Dosage: 100 MG, QD
     Route: 041
     Dates: start: 20170213, end: 20170215

REACTIONS (2)
  - Seizure [Recovering/Resolving]
  - Loss of consciousness [Recovering/Resolving]

NARRATIVE: CASE EVENT DATE: 20170217
